FAERS Safety Report 22088547 (Version 1)
Quarter: 2023Q1

REPORT INFORMATION
  Report Type: Spontaneous
  Country: LB (occurrence: None)
  Receive Date: 20230313
  Receipt Date: 20230313
  Transmission Date: 20230417
  Serious: Yes (Other)
  Sender: FDA-Public Use
  Company Number: LB-ROCHE-3304234

PATIENT
  Age: 59 Year
  Sex: Female

DRUGS (1)
  1. OCREVUS [Suspect]
     Active Substance: OCRELIZUMAB
     Indication: Relapsing-remitting multiple sclerosis
     Route: 065
     Dates: start: 202101

REACTIONS (2)
  - Urinary tract infection [Unknown]
  - Multiple sclerosis [Unknown]
